FAERS Safety Report 5575711-5 (Version None)
Quarter: 2007Q4

REPORT INFORMATION
  Report Type: 
  Country: None (occurrence: None)
  Receive Date: 20071226
  Receipt Date: 20071210
  Transmission Date: 20080405
  Serious: Yes (Other)
  Sender: FDA-Public Use
  Company Number: ADE2007-0082

PATIENT
  Age: 60 Year
  Sex: Male

DRUGS (1)
  1. SERTRALINE HCL [Suspect]
     Dates: start: 20070101

REACTIONS (1)
  - BLOOD CREATINE PHOSPHOKINASE INCREASED [None]
